FAERS Safety Report 16236818 (Version 3)
Quarter: 2019Q2

REPORT INFORMATION
  Report Type: Report from Study
  Country: MY (occurrence: MY)
  Receive Date: 20190425
  Receipt Date: 20190517
  Transmission Date: 20190711
  Serious: Yes (Hospitalization)
  Sender: FDA-Public Use
  Company Number: MY-TOLMAR, INC.-2019MY004028

PATIENT

DRUGS (5)
  1. CEFUROXIME. [Concomitant]
     Active Substance: CEFUROXIME
     Indication: PROPHYLAXIS
     Dosage: 1.5 MG, TID
     Route: 042
     Dates: start: 20190408, end: 20190409
  2. CEFUROXIME. [Concomitant]
     Active Substance: CEFUROXIME
     Dosage: 250 MG, BID
     Route: 048
     Dates: start: 20190409, end: 20190416
  3. LACTULOSE. [Concomitant]
     Active Substance: LACTULOSE
     Indication: PROPHYLAXIS
     Dosage: 15 ML, DAILY
     Route: 048
     Dates: start: 20190409
  4. FERROUS FUMARATE [Concomitant]
     Active Substance: FERROUS FUMARATE
     Indication: PROPHYLAXIS
     Dosage: 200 MG, DAILY
     Route: 048
     Dates: start: 20190409
  5. ELIGARD [Suspect]
     Active Substance: LEUPROLIDE ACETATE
     Indication: PROSTATE CANCER METASTATIC
     Dosage: 22.5 MG, EVERY 3 MONTHLY
     Route: 058
     Dates: start: 20180119

REACTIONS (1)
  - Femur fracture [Recovered/Resolved]

NARRATIVE: CASE EVENT DATE: 20190406
